FAERS Safety Report 12003215 (Version 1)
Quarter: 2016Q1

REPORT INFORMATION
  Report Type: Spontaneous
  Country: US (occurrence: US)
  Receive Date: 20160204
  Receipt Date: 20160204
  Transmission Date: 20160526
  Serious: No
  Sender: FDA-Public Use
  Company Number: US-UCBSA-2014022820

PATIENT
  Age: 69 Year
  Sex: Female
  Weight: 41.27 kg

DRUGS (4)
  1. HYDROCODONE POLISTIREX AND CHLORPHENIRAMINE POLISTIREX PENNKINETIC [Suspect]
     Active Substance: CHLORPHENIRAMINE MALEATE\HYDROCODONE BITARTRATE
     Indication: COUGH
     Dosage: 2.5 ML, 2X/DAY (BID)
     Route: 048
     Dates: start: 20141128, end: 201502
  2. BAYER ASPIRIN [Concomitant]
     Active Substance: ASPIRIN
     Indication: ANTICOAGULANT THERAPY
     Dosage: 81 MG, 2X/DAY (BID)
     Route: 048
  3. TUSSIONEX PENNKINETIC [Suspect]
     Active Substance: CHLORPHENIRAMINE\HYDROCODONE
     Indication: COUGH
     Dosage: UNK
     Dates: start: 20150130
  4. SYNTHROID [Concomitant]
     Active Substance: LEVOTHYROXINE SODIUM
     Indication: THYROID DISORDER
     Dosage: 75 ?G, ONCE DAILY (QD)
     Route: 048
     Dates: start: 1994

REACTIONS (6)
  - Product physical consistency issue [None]
  - Burning sensation [Recovered/Resolved]
  - Oesophageal haemorrhage [Recovered/Resolved]
  - Drug ineffective [Unknown]
  - Product taste abnormal [Unknown]
  - Oropharyngeal pain [Recovered/Resolved]

NARRATIVE: CASE EVENT DATE: 20141128
